FAERS Safety Report 23690522 (Version 1)
Quarter: 2024Q2

REPORT INFORMATION
  Report Type: Spontaneous
  Country: GB (occurrence: GB)
  Receive Date: 20240401
  Receipt Date: 20240401
  Transmission Date: 20240716
  Serious: Yes (Other)
  Sender: FDA-Public Use
  Company Number: GB-TAKEDA-2024TUS028572

PATIENT
  Sex: Male
  Weight: 30 kg

DRUGS (4)
  1. TEDUGLUTIDE [Suspect]
     Active Substance: TEDUGLUTIDE
     Indication: Product used for unknown indication
     Dosage: 0.025 MILLIGRAM/KILOGRAM
     Route: 065
  2. TEDUGLUTIDE [Suspect]
     Active Substance: TEDUGLUTIDE
     Indication: Product used for unknown indication
     Dosage: 0.025 MILLIGRAM/KILOGRAM
     Route: 065
  3. TEDUGLUTIDE [Suspect]
     Active Substance: TEDUGLUTIDE
     Indication: Product used for unknown indication
     Dosage: 0.025 MILLIGRAM/KILOGRAM
     Route: 065
  4. TEDUGLUTIDE [Suspect]
     Active Substance: TEDUGLUTIDE
     Indication: Product used for unknown indication
     Dosage: 0.025 MILLIGRAM/KILOGRAM
     Route: 065

REACTIONS (5)
  - Acute kidney injury [Unknown]
  - Thirst [Unknown]
  - Stoma complication [Unknown]
  - Fall [Unknown]
  - Incorrect dose administered [Unknown]
